FAERS Safety Report 4471384-3 (Version None)
Quarter: 2004Q4

REPORT INFORMATION
  Report Type: 
  Country: None (occurrence: None)
  Receive Date: 20041012
  Receipt Date: 20040928
  Transmission Date: 20050328
  Serious: Yes (Other)
  Sender: FDA-Public Use
  Company Number: US-JNJFOC-20041001562

PATIENT
  Sex: Female
  Weight: 65.77 kg

DRUGS (1)
  1. ORTHO EVRA [Suspect]
     Indication: CONTRACEPTION
     Route: 062

REACTIONS (7)
  - DRUG EXPOSURE DURING PREGNANCY [None]
  - HEADACHE [None]
  - OEDEMA [None]
  - PALPITATIONS [None]
  - PELVIC PAIN [None]
  - PREMATURE LABOUR [None]
  - UNINTENDED PREGNANCY [None]
